FAERS Safety Report 6888169-0 (Version None)
Quarter: 2010Q3

REPORT INFORMATION
  Report Type: 
  Country: None (occurrence: None)
  Receive Date: 20100708
  Receipt Date: 20091020
  Transmission Date: 20110219
  Serious: Yes (Other)
  Sender: FDA-Public Use
  Company Number: 2009287693

PATIENT
  Sex: Female

DRUGS (1)
  1. CHANTIX [Suspect]
     Dosage: ORAL
     Route: 048
     Dates: start: 20070101, end: 20080101

REACTIONS (3)
  - ABNORMAL DREAMS [None]
  - DEPRESSION [None]
  - SUICIDAL IDEATION [None]
